FAERS Safety Report 7598110-3 (Version None)
Quarter: 2011Q3

REPORT INFORMATION
  Report Type: 
  Country: None (occurrence: None)
  Receive Date: 20110708
  Receipt Date: 20110629
  Transmission Date: 20111222
  Serious: Yes (Hospitalization)
  Sender: FDA-Public Use
  Company Number: CA-JNJFOC-20100908754

PATIENT
  Sex: Female
  Weight: 63 kg

DRUGS (10)
  1. REMICADE [Suspect]
     Route: 042
     Dates: start: 20090918
  2. PURINETHOL [Concomitant]
     Route: 048
  3. REMICADE [Suspect]
     Indication: CROHN'S DISEASE
     Route: 042
     Dates: start: 20090615
  4. REMICADE [Suspect]
     Route: 042
     Dates: start: 20090722
  5. REMICADE [Suspect]
     Route: 042
     Dates: start: 20100106
  6. FERROUS SULFATE TAB [Concomitant]
     Route: 048
  7. PREVACID [Concomitant]
     Route: 048
  8. REMICADE [Suspect]
     Route: 042
     Dates: start: 20091113
  9. PREDNISONE [Concomitant]
     Route: 048
  10. REMICADE [Suspect]
     Route: 042
     Dates: start: 20090626

REACTIONS (1)
  - MATERNAL EXPOSURE DURING PREGNANCY [None]
